FAERS Safety Report 10343229 (Version 3)
Quarter: 2014Q3

REPORT INFORMATION
  Report Type: Spontaneous
  Country: DE (occurrence: DE)
  Receive Date: 20140725
  Receipt Date: 20140812
  Transmission Date: 20150326
  Serious: Yes (Hospitalization)
  Sender: FDA-Public Use
  Company Number: DE-AMGEN-DEUSP2014055831

PATIENT
  Sex: Male

DRUGS (17)
  1. PREDNISOLONE. [Suspect]
     Active Substance: PREDNISOLONE
     Indication: B-CELL LYMPHOMA
     Dosage: 100 MG, 1 TIMES A DAY FOR 5 DAYS
     Route: 048
     Dates: start: 20140613, end: 20140617
  2. EZETIMIBA/SIMVASTATINA [Concomitant]
     Indication: HYPERLIPIDAEMIA
     Dosage: 10/40 MG, 1/D
     Route: 048
  3. PEGFILGRASTIM [Suspect]
     Active Substance: PEGFILGRASTIM
     Indication: B-CELL LYMPHOMA
     Dosage: 6 MG, 1 TIME A DAY FOR 1 DAY
     Route: 058
     Dates: start: 20140616, end: 20140616
  4. COLECALCIFEROL [Concomitant]
     Active Substance: CHOLECALCIFEROL
     Indication: VITAMIN SUPPLEMENTATION
     Dosage: 5 MG, 1 TIMES A WEEK
     Route: 048
     Dates: start: 201404
  5. RANOLAZINE [Concomitant]
     Active Substance: RANOLAZINE
     Indication: HYPERTENSION
     Dosage: 375 MG, 2 TIMES A DAY
     Route: 048
  6. RITUXIMAB [Suspect]
     Active Substance: RITUXIMAB
     Indication: B-CELL LYMPHOMA
     Dosage: 731 MG, 1 TIMES A DAY FOR 1 DAY
     Route: 042
     Dates: start: 20140703, end: 20140703
  7. CYCLOPHOSPHAMIDE. [Suspect]
     Active Substance: CYCLOPHOSPHAMIDE
     Indication: B-CELL LYMPHOMA
     Dosage: 1463 MG, 1 TIMES DAYS FOR 1 DAY
     Route: 042
     Dates: start: 20140613, end: 20140613
  8. SULFAMETHOXAZOLE AND TRIMETHOPRIM [Concomitant]
     Active Substance: SULFAMETHOXAZOLE\TRIMETHOPRIM
     Indication: INFECTION PROPHYLAXIS
     Dosage: 160/180 MG, 2XDAY/2XWEEK
     Route: 048
     Dates: start: 201404
  9. ENALAPRIL [Concomitant]
     Active Substance: ENALAPRIL
     Indication: HYPERTENSION
     Dosage: 2.5 MG, 2 TIMES A DAY
     Route: 048
  10. ACICLOVIR [Concomitant]
     Active Substance: ACYCLOVIR
     Indication: INFECTION PROPHYLAXIS
     Dosage: 400 MG, 4 TIMES A DAY
     Route: 048
     Dates: start: 201404
  11. VINCRISTINE [Suspect]
     Active Substance: VINCRISTINE
     Indication: B-CELL LYMPHOMA
     Dosage: 4.18 MG, 1 TIME A DAY FOR 1 DAY
     Route: 042
     Dates: start: 20140613, end: 20140613
  12. DOXORUBICINE                       /00330901/ [Suspect]
     Active Substance: DOXORUBICIN
     Indication: B-CELL LYMPHOMA
     Dosage: 96 MG, 1 TIME A DAY FOR 1 DAY
     Route: 042
     Dates: start: 20140613, end: 20140613
  13. FUROSEMIDE. [Concomitant]
     Active Substance: FUROSEMIDE
     Indication: HYPERTENSION
     Dosage: 40 MG, 2 TIMES A DAY
     Route: 048
  14. EPLERENONE. [Concomitant]
     Active Substance: EPLERENONE
     Indication: CARDIAC FAILURE
     Dosage: 25 MG, 2 TIMES A DAY
     Route: 048
  15. PANTOPRAZOLE SODIUM [Concomitant]
     Active Substance: PANTOPRAZOLE SODIUM
     Indication: PROPHYLAXIS AGAINST GASTROINTESTINAL ULCER
     Dosage: 40 MG, 1 TIMES A DAY
     Route: 048
     Dates: start: 201404
  16. ENOXAPARIN SODIUM. [Concomitant]
     Active Substance: ENOXAPARIN SODIUM
     Indication: THROMBOSIS PROPHYLAXIS
     Dosage: 1 ML, 1 TIMES A DAY
     Route: 058
     Dates: start: 201404
  17. BISOPROLOL HEMIFUMARATE [Concomitant]
     Active Substance: BISOPROLOL
     Indication: HYPERTENSION
     Dosage: 2.5 MG, 2 TIMES A DAY
     Route: 048

REACTIONS (1)
  - General physical health deterioration [Recovered/Resolved]

NARRATIVE: CASE EVENT DATE: 20140714
